FAERS Safety Report 26195289 (Version 2)
Quarter: 2025Q4

REPORT INFORMATION
  Report Type: Spontaneous
  Country: BR (occurrence: BR)
  Receive Date: 20251224
  Receipt Date: 20251230
  Transmission Date: 20260117
  Serious: Yes (Other)
  Sender: SANDOZ
  Company Number: BR-002147023-NVSC2024BR223512

PATIENT
  Sex: Female

DRUGS (8)
  1. ANASTROZOLE [Suspect]
     Active Substance: ANASTROZOLE
     Indication: Product used for unknown indication
     Dosage: UNK
  2. KISQALI [Suspect]
     Active Substance: RIBOCICLIB SUCCINATE
     Indication: Breast cancer metastatic
     Dosage: UNK
  3. KISQALI [Suspect]
     Active Substance: RIBOCICLIB SUCCINATE
     Indication: Breast cancer
     Dosage: 3 DOSAGE FORM 21 DAYS/BREAK 7
  4. KISQALI [Suspect]
     Active Substance: RIBOCICLIB SUCCINATE
     Dosage: 2 DOSAGE FORM 21 DAYS/BREAK 7
  5. KISQALI [Suspect]
     Active Substance: RIBOCICLIB SUCCINATE
     Dosage: 3 DOSAGE FORM 21 DAYS/BREAK 7
  6. KISQALI [Suspect]
     Active Substance: RIBOCICLIB SUCCINATE
     Dosage: 3 DOSAGE FORM, OTHER (3 TABLETS)
  7. KISQALI [Suspect]
     Active Substance: RIBOCICLIB SUCCINATE
     Dosage: 200 MG (CONTAINS: 63 COATED TABLETS; ADULT USE)
  8. ANASTROZOLE [Concomitant]
     Active Substance: ANASTROZOLE
     Indication: Product used for unknown indication
     Dosage: UNK

REACTIONS (21)
  - Hepatic neoplasm [Not Recovered/Not Resolved]
  - Sluggishness [Not Recovered/Not Resolved]
  - Discouragement [Not Recovered/Not Resolved]
  - Laboratory test abnormal [Unknown]
  - Decreased immune responsiveness [Recovered/Resolved]
  - Skin swelling [Recovered/Resolved]
  - Platelet count decreased [Recovered/Resolved]
  - Skin exfoliation [Unknown]
  - Skin irritation [Unknown]
  - Skin discolouration [Unknown]
  - Decreased immune responsiveness [Unknown]
  - Skin depigmentation [Unknown]
  - Dry skin [Unknown]
  - Pruritus [Recovered/Resolved]
  - White blood cell count decreased [Recovering/Resolving]
  - Red blood cell count decreased [Not Recovered/Not Resolved]
  - Pruritus [Unknown]
  - Hypersensitivity [Recovered/Resolved]
  - Asthenia [Not Recovered/Not Resolved]
  - Malaise [Not Recovered/Not Resolved]
  - Drug ineffective [Unknown]
